FAERS Safety Report 19816231 (Version 2)
Quarter: 2021Q3

REPORT INFORMATION
  Report Type: Report from Study
  Country: US (occurrence: US)
  Receive Date: 20210909
  Receipt Date: 20210913
  Transmission Date: 20211014
  Serious: Yes (Hospitalization, Other)
  Sender: FDA-Public Use
  Company Number: US-BRISTOL-MYERS SQUIBB COMPANY-BMS-2021-081487

PATIENT
  Age: 71 Year
  Sex: Male
  Weight: 75 kg

DRUGS (19)
  1. ALBUTEROL [SALBUTAMOL SULFATE] [Concomitant]
     Active Substance: ALBUTEROL SULFATE
     Indication: DYSPNOEA
     Dosage: 0.5 PERCENT NEBULIZATION SOLUTION AS NEEDED (0.5 ML,L IN 6 HR)
     Route: 045
     Dates: start: 20210409
  2. LOPERAMIDE [Concomitant]
     Active Substance: LOPERAMIDE
     Indication: DIARRHOEA
     Dosage: UNK
     Route: 048
     Dates: start: 20210409
  3. SENNOSIDES A+B CALCIUM [Concomitant]
     Active Substance: SENNOSIDES A AND B
     Indication: CONSTIPATION
     Dosage: AS NEEDED (5 ML,1 IN 1 D)
     Route: 065
     Dates: start: 20210409
  4. IPRATROPIUM BROMIDE. [Concomitant]
     Active Substance: IPRATROPIUM BROMIDE
     Indication: WHEEZING
     Dosage: (2.5 ML,AS REQUIRED)
     Route: 045
     Dates: start: 20210409
  5. NALOXONE [Concomitant]
     Active Substance: NALOXONE
     Indication: PROPHYLAXIS
     Dosage: A SINGLE SPRAY, AS NEEDED (0.1 ML)
     Route: 045
     Dates: start: 20210409
  6. NIVOLUMAB [Suspect]
     Active Substance: NIVOLUMAB
     Indication: LARYNGEAL SQUAMOUS CELL CARCINOMA
     Dosage: 240 MG, 1 IN 2 WK
     Route: 042
     Dates: start: 20210604, end: 20210702
  7. RP1 [Suspect]
     Active Substance: SERINE/THREONINE-PROTEIN KINASE 19
     Dosage: 1 X 10A 7 PFU/ML (1 IN 2 WK)
     Route: 036
     Dates: start: 20210702, end: 20210702
  8. ATORVASTATIN [Concomitant]
     Active Substance: ATORVASTATIN
     Indication: HYPERLIPIDAEMIA
     Dosage: 40 MILLIGRAM
     Route: 065
  9. LEVOTHYROXINE. [Concomitant]
     Active Substance: LEVOTHYROXINE
     Indication: PRIMARY HYPOTHYROIDISM
     Dosage: (1 DOSAGE FORMS,L IN 1 D)
     Dates: start: 20210407
  10. BISACODYL. [Concomitant]
     Active Substance: BISACODYL
     Indication: CONSTIPATION
     Dosage: AS NEEDED (1 DOSAGE FORMS,L IN 1 D)
     Route: 054
     Dates: start: 20210409
  11. HYDROCORTISONE. [Concomitant]
     Active Substance: HYDROCORTISONE
     Indication: HYPOAESTHESIA
     Dosage: 2.5 PERCENT, BID
     Route: 061
     Dates: start: 20210409
  12. MACROGOL [Concomitant]
     Active Substance: POLYETHYLENE GLYCOLS
     Indication: CONSTIPATION
     Dosage: 1 PACKET AS NEEDED (1 DOSAGE FORMS)
     Route: 065
     Dates: start: 20210409
  13. RP1 [Suspect]
     Active Substance: SERINE/THREONINE-PROTEIN KINASE 19
     Indication: LARYNGEAL SQUAMOUS CELL CARCINOMA
     Dosage: 1 X 10^6 PFU/ML (1 IN 2 WK)
     Route: 036
     Dates: start: 20210521, end: 20210521
  14. OMEPRAZOLE. [Concomitant]
     Active Substance: OMEPRAZOLE
     Indication: GASTROOESOPHAGEAL REFLUX DISEASE
     Dosage: 20 MILLIGRAM, BID
     Route: 065
     Dates: start: 20210409
  15. SERTRALINE [Concomitant]
     Active Substance: SERTRALINE HYDROCHLORIDE
     Indication: DEPRESSION
     Dosage: 1 DOSAGE FORMS (1 DOSAGE FORMS,1 IN 1 D)
     Route: 065
     Dates: start: 20210407
  16. METHADONE [Concomitant]
     Active Substance: METHADONE HYDROCHLORIDE
     Indication: PAIN
     Dosage: 30 MG (10 MG,1 IN 8 HR)
     Route: 048
     Dates: start: 20210524
  17. ONDANSETRON [Concomitant]
     Active Substance: ONDANSETRON
     Indication: NAUSEA
     Dosage: 20 ML (5 ML,L IN 6 HR)
     Dates: start: 20210407
  18. MULTIVITAMIN + MINERAL [Concomitant]
     Active Substance: MINERALS\VITAMINS
     Indication: SUPPLEMENTATION THERAPY
     Dosage: 15 MILLILITER, QD
     Route: 048
  19. ONDANSETRON [Concomitant]
     Active Substance: ONDANSETRON
     Indication: VOMITING
     Dosage: PRIOR TO MORNING MEDS (5 ML,L IN 1 D)
     Route: 048
     Dates: start: 20210410

REACTIONS (3)
  - Pneumonia aspiration [Unknown]
  - Syncope [Recovered/Resolved]
  - Acute respiratory failure [Recovered/Resolved]

NARRATIVE: CASE EVENT DATE: 20210805
